FAERS Safety Report 23935577 (Version 1)
Quarter: 2024Q2

REPORT INFORMATION
  Report Type: Spontaneous
  Country: CN (occurrence: None)
  Receive Date: 20240604
  Receipt Date: 20240604
  Transmission Date: 20240717
  Serious: Yes (Other)
  Sender: FDA-Public Use
  Company Number: CN-ROCHE-3575305

PATIENT
  Sex: Male
  Weight: 60 kg

DRUGS (4)
  1. TARCEVA [Suspect]
     Active Substance: ERLOTINIB HYDROCHLORIDE
     Indication: Renal cell carcinoma stage IV
     Route: 048
     Dates: start: 20240418, end: 20240530
  2. AVASTIN [Suspect]
     Active Substance: BEVACIZUMAB
     Indication: Renal cell carcinoma stage IV
     Route: 041
     Dates: start: 20240418
  3. AVASTIN [Suspect]
     Active Substance: BEVACIZUMAB
     Route: 041
     Dates: start: 20240506
  4. SODIUM CHLORIDE [Concomitant]
     Active Substance: SODIUM CHLORIDE
     Route: 041
     Dates: start: 20240508, end: 20240508

REACTIONS (2)
  - Rash [Not Recovered/Not Resolved]
  - Off label use [Unknown]
